FAERS Safety Report 4274163-5 (Version None)
Quarter: 2004Q1

REPORT INFORMATION
  Report Type: 
  Country: None (occurrence: None)
  Receive Date: 20040115
  Receipt Date: 20040106
  Transmission Date: 20041129
  Serious: Yes (Hospitalization)
  Sender: FDA-Public Use
  Company Number: 2004-01-0064

PATIENT
  Age: 2 Year
  Sex: Male

DRUGS (1)
  1. BETAMETHASONE DIPROPIONATE OINTMENT [Suspect]
     Indication: ECZEMA
     Dosage: 240 MG (TOTAL) TOP-DERM

REACTIONS (3)
  - ACARODERMATITIS [None]
  - IMMUNOSUPPRESSION [None]
  - NAIL DYSTROPHY [None]
